FAERS Safety Report 14326174 (Version 2)
Quarter: 2017Q4

REPORT INFORMATION
  Report Type: Spontaneous
  Country: US (occurrence: US)
  Receive Date: 20171227
  Receipt Date: 20171227
  Transmission Date: 20180321
  Serious: No
  Sender: FDA-Public Use
  Company Number: US-PFIZER INC-2017541775

PATIENT
  Age: 49 Year
  Sex: Female

DRUGS (1)
  1. ATROPINE SULFATE/DIPHENOXYLATE HYDROCHLORIDE [Suspect]
     Active Substance: ATROPINE SULFATE\DIPHENOXYLATE HYDROCHLORIDE
     Indication: DIARRHOEA
     Dosage: UNK UNK, AS NEEDED (2.5-0.025 EVERY 6 HOURS)
     Route: 048
     Dates: start: 2017

REACTIONS (3)
  - Asthenia [Unknown]
  - Drug ineffective [Unknown]
  - Product use issue [None]

NARRATIVE: CASE EVENT DATE: 2017
